FAERS Safety Report 17846420 (Version 1)
Quarter: 2020Q2

REPORT INFORMATION
  Report Type: Spontaneous
  Country: US (occurrence: US)
  Receive Date: 20200601
  Receipt Date: 20200601
  Transmission Date: 20200714
  Serious: Yes (Other)
  Sender: FDA-Public Use
  Company Number: US-009507513-2005USA008268

PATIENT
  Age: 68 Year
  Sex: Male

DRUGS (15)
  1. INVANZ [Suspect]
     Active Substance: ERTAPENEM SODIUM
     Dosage: ONCE DAILY FOR 10 DAYS
     Route: 042
     Dates: start: 20200520, end: 20200521
  2. VITAMIN D (UNSPECIFIED) [Concomitant]
     Active Substance: VITAMIN D NOS
  3. COUMADIN [Concomitant]
     Active Substance: WARFARIN SODIUM
  4. INVANZ [Suspect]
     Active Substance: ERTAPENEM SODIUM
     Indication: URINARY TRACT INFECTION
     Dosage: ONCE DAILY FOR 10 DAYS
     Route: 042
     Dates: start: 202001, end: 202002
  5. DILAUDID [Suspect]
     Active Substance: HYDROMORPHONE HYDROCHLORIDE
     Indication: PAIN
     Dosage: UNK
     Dates: start: 2020
  6. SYNTHROID [Concomitant]
     Active Substance: LEVOTHYROXINE SODIUM
  7. ASPIRIN. [Concomitant]
     Active Substance: ASPIRIN
  8. INVANZ [Suspect]
     Active Substance: ERTAPENEM SODIUM
     Dosage: ONCE DAILY FOR 10 DAYS
     Route: 042
     Dates: start: 20200310, end: 20200318
  9. PERCOCET [Suspect]
     Active Substance: ACETAMINOPHEN\OXYCODONE HYDROCHLORIDE
     Indication: PAIN
     Dosage: UNK
     Dates: start: 2020
  10. INVANZ [Suspect]
     Active Substance: ERTAPENEM SODIUM
     Dosage: ONCE DAILY FOR 10 DAYS
     Route: 042
     Dates: start: 202004, end: 202004
  11. OMEPRAZOLE. [Concomitant]
     Active Substance: OMEPRAZOLE
  12. VITAMIN A [Concomitant]
     Active Substance: VITAMIN A
  13. ALLEGRA [Concomitant]
     Active Substance: FEXOFENADINE HYDROCHLORIDE
  14. VITAMIN E [Concomitant]
     Active Substance: .ALPHA.-TOCOPHEROL
  15. LIPITOR [Concomitant]
     Active Substance: ATORVASTATIN CALCIUM

REACTIONS (8)
  - Musculoskeletal stiffness [Not Recovered/Not Resolved]
  - Pain [Recovering/Resolving]
  - Inappropriate schedule of product administration [Unknown]
  - Prostatic disorder [Not Recovered/Not Resolved]
  - Pain [Recovered/Resolved]
  - Drug ineffective [Unknown]
  - Urinary tract infection [Unknown]
  - Spinal cord compression [Unknown]

NARRATIVE: CASE EVENT DATE: 2020
